FAERS Safety Report 5135699-8 (Version None)
Quarter: 2006Q4

REPORT INFORMATION
  Report Type: 
  Country: None (occurrence: None)
  Receive Date: 20061026
  Receipt Date: 20061014
  Transmission Date: 20070319
  Serious: Yes (Hospitalization)
  Sender: FDA-Public Use
  Company Number: PHFR2006GB03086

PATIENT
  Age: 41 Year
  Sex: Male

DRUGS (1)
  1. CLOZARIL [Suspect]
     Dosage: 450 MG, QD
     Route: 048
     Dates: start: 20061013, end: 20061013

REACTIONS (5)
  - HEART RATE INCREASED [None]
  - HYPERTENSION [None]
  - MEDICATION ERROR [None]
  - SALIVARY HYPERSECRETION [None]
  - SOMNOLENCE [None]
